FAERS Safety Report 12230405 (Version 1)
Quarter: 2016Q1

REPORT INFORMATION
  Report Type: Spontaneous
  Country: US (occurrence: None)
  Receive Date: 20160331
  Receipt Date: 20160331
  Transmission Date: 20160526
  Serious: Yes (Hospitalization)
  Sender: FDA-Public Use
  Company Number: None

PATIENT
  Age: 58 Year
  Sex: Male
  Weight: 89.9 kg

DRUGS (6)
  1. NAPROXEN (NAPROSYN) [Concomitant]
  2. SULFAMETHOXAZOLE-TRIMETHOPRIM, 800MG-160MG [Suspect]
     Active Substance: SULFAMETHOXAZOLE\TRIMETHOPRIM
     Indication: INFECTED CYST
     Dates: start: 20151104, end: 20151114
  3. CALCIUM CARBONATE/VITAMIN D3 (CALCIUM 500 WITH VITAMIN D) [Concomitant]
  4. VITAMIN D3 [Concomitant]
     Active Substance: CHOLECALCIFEROL
  5. CHOLECALCIFEROL [Concomitant]
     Active Substance: CHOLECALCIFEROL
  6. VITAMIN D [Concomitant]
     Active Substance: CHOLECALCIFEROL

REACTIONS (1)
  - Acute febrile neutrophilic dermatosis [None]

NARRATIVE: CASE EVENT DATE: 20151115
